FAERS Safety Report 6485977-5 (Version None)
Quarter: 2009Q4

REPORT INFORMATION
  Report Type: 
  Country: None (occurrence: None)
  Receive Date: 20091209
  Receipt Date: 20090715
  Transmission Date: 20100525
  Serious: No
  Sender: FDA-Public Use
  Company Number: US-AMGEN-KDL356000

PATIENT
  Sex: Male

DRUGS (1)
  1. ENBREL [Suspect]
     Indication: PSORIASIS
     Route: 058
     Dates: start: 20090514

REACTIONS (4)
  - LETHARGY [None]
  - NAUSEA [None]
  - PSORIASIS [None]
  - SKIN ODOUR ABNORMAL [None]
